FAERS Safety Report 9067886 (Version 1)
Quarter: 2013Q1

REPORT INFORMATION
  Report Type: Spontaneous
  Country: US (occurrence: US)
  Receive Date: 20130128
  Receipt Date: 20130128
  Transmission Date: 20140127
  Serious: No
  Sender: FDA-Public Use
  Company Number: US-TEVA-381310USA

PATIENT
  Sex: Female
  Weight: 35.87 kg

DRUGS (1)
  1. PROAIR HFA [Suspect]
     Dosage: 2 PUFFS QID
     Route: 055

REACTIONS (1)
  - Drug effect decreased [Not Recovered/Not Resolved]
